FAERS Safety Report 8201198-X (Version None)
Quarter: 2012Q1

REPORT INFORMATION
  Report Type: 
  Country: None (occurrence: None)
  Receive Date: 20120312
  Receipt Date: 20120305
  Transmission Date: 20120608
  Serious: Yes (Hospitalization)
  Sender: FDA-Public Use
  Company Number: PHHY2012SK017970

PATIENT
  Age: 69 Year
  Sex: Female

DRUGS (1)
  1. CARBAMAZEPINE [Suspect]
     Indication: EPILEPSY
     Dosage: UNK UKN, UNK

REACTIONS (3)
  - DISORIENTATION [None]
  - SOMNOLENCE [None]
  - HYPONATRAEMIA [None]
